FAERS Safety Report 26137966 (Version 1)
Quarter: 2025Q4

REPORT INFORMATION
  Report Type: Report from Study
  Country: KR (occurrence: KR)
  Receive Date: 20251210
  Receipt Date: 20251210
  Transmission Date: 20260118
  Serious: Yes (Other)
  Sender: ABBVIE
  Company Number: KR-ABBVIE-6579516

PATIENT
  Age: 33 Year
  Sex: Female
  Weight: 68 kg

DRUGS (2)
  1. HUMIRA [Suspect]
     Active Substance: ADALIMUMAB
     Indication: Uveitis
     Dosage: DOSE FORM: SOLUTION FOR INJECTION IN PRE-FILLED PEN?FORM STRENGTH: 40 MG
     Route: 058
     Dates: start: 20230810
  2. HUMIRA [Suspect]
     Active Substance: ADALIMUMAB
     Dosage: DOSE FORM: SOLUTION FOR INJECTION IN PRE-FILLED PEN?FORM STRENGTH: 40 MG
     Route: 058
     Dates: start: 20230803, end: 20230803

REACTIONS (3)
  - Thyroid cancer [Not Recovered/Not Resolved]
  - Poor peripheral circulation [Not Recovered/Not Resolved]
  - Adverse drug reaction [Unknown]

NARRATIVE: CASE EVENT DATE: 20250101
